FAERS Safety Report 7439389-8 (Version None)
Quarter: 2011Q2

REPORT INFORMATION
  Report Type: 
  Country: None (occurrence: None)
  Receive Date: 20110421
  Receipt Date: 20110421
  Transmission Date: 20111010
  Serious: Yes (Other)
  Sender: FDA-Public Use
  Company Number: None

PATIENT
  Sex: Male
  Weight: 124.7392 kg

DRUGS (1)
  1. BYETTA [Suspect]
     Indication: DRUG RESISTANCE
     Dosage: 10 MG WEEKLY ID
     Dates: start: 20100501, end: 20100615

REACTIONS (7)
  - FATIGUE [None]
  - BACK PAIN [None]
  - GAIT DISTURBANCE [None]
  - ABDOMINAL DISCOMFORT [None]
  - DIARRHOEA [None]
  - TOXICITY TO VARIOUS AGENTS [None]
  - MALAISE [None]
